FAERS Safety Report 8598165-3 (Version None)
Quarter: 2012Q3

REPORT INFORMATION
  Report Type: 
  Country: None (occurrence: None)
  Receive Date: 20120816
  Receipt Date: 20120808
  Transmission Date: 20120928
  Serious: Yes (Hospitalization)
  Sender: FDA-Public Use
  Company Number: PHEH2012US015712

PATIENT
  Sex: Female

DRUGS (1)
  1. DIOVAN HCT [Suspect]

REACTIONS (6)
  - CYSTITIS [None]
  - POLLAKIURIA [None]
  - MUSCLE SPASMS [None]
  - CARDIAC FAILURE [None]
  - RENAL FAILURE [None]
  - DEHYDRATION [None]
